FAERS Safety Report 19058670 (Version 2)
Quarter: 2021Q2

REPORT INFORMATION
  Report Type: Spontaneous
  Country: US (occurrence: US)
  Receive Date: 20210325
  Receipt Date: 20210401
  Transmission Date: 20210717
  Serious: No
  Sender: FDA-Public Use
  Company Number: US-BAYER-2021-109142

PATIENT
  Age: 54 Year
  Sex: Male
  Weight: 40.82 kg

DRUGS (3)
  1. PREDNISONE. [Concomitant]
     Active Substance: PREDNISONE
     Indication: PREMEDICATION
     Dosage: UNK
     Dates: start: 20210125
  2. GADAVIST [Suspect]
     Active Substance: GADOBUTROL
     Indication: BRAIN NEOPLASM MALIGNANT
     Dosage: 8.5 ML, ONCE
     Route: 042
     Dates: start: 20210125, end: 20210125
  3. GADAVIST [Suspect]
     Active Substance: GADOBUTROL
     Indication: MAGNETIC RESONANCE IMAGING

REACTIONS (4)
  - Feeling hot [Recovered/Resolved]
  - Contrast media allergy [None]
  - Erythema [Recovered/Resolved]
  - Urticaria [Recovered/Resolved]

NARRATIVE: CASE EVENT DATE: 20210125
